FAERS Safety Report 8182411-4 (Version None)
Quarter: 2012Q1

REPORT INFORMATION
  Report Type: 
  Country: None (occurrence: None)
  Receive Date: 20120304
  Receipt Date: 20120229
  Transmission Date: 20120608
  Serious: Yes (Hospitalization)
  Sender: FDA-Public Use
  Company Number: US-ABBOTT-12P-163-0900816-00

PATIENT
  Sex: Male

DRUGS (3)
  1. METHOTREXATE [Concomitant]
     Indication: PRODUCT USED FOR UNKNOWN INDICATION
  2. HUMIRA [Suspect]
     Indication: CROHN'S DISEASE
     Dosage: DOSAGE INCREASED
     Dates: start: 20111205
  3. HUMIRA [Suspect]
     Route: 050

REACTIONS (5)
  - NUTRITIONAL SUPPORT [None]
  - PAIN [None]
  - HOSPITALISATION [None]
  - CROHN'S DISEASE [None]
  - DIARRHOEA [None]
